FAERS Safety Report 5201731-6 (Version None)
Quarter: 2007Q1

REPORT INFORMATION
  Report Type: 
  Country: None (occurrence: None)
  Receive Date: 20070104
  Receipt Date: 20061219
  Transmission Date: 20070707
  Serious: Yes (Death)
  Sender: FDA-Public Use
  Company Number: 2006JP005361

PATIENT
  Sex: Female
  Weight: 47 kg

DRUGS (15)
  1. FUNGUARD(MICAFUNGIN) INJECTION [Suspect]
     Dosage: SEE IMAGE
     Route: 041
     Dates: start: 20060820, end: 20060822
  2. FUNGUARD(MICAFUNGIN) INJECTION [Suspect]
     Dosage: SEE IMAGE
     Route: 041
     Dates: start: 20060823, end: 20060828
  3. FUNGUARD(MICAFUNGIN) INJECTION [Suspect]
     Dosage: SEE IMAGE
     Route: 041
     Dates: start: 20060829, end: 20060912
  4. ZYVOX (LINEZOLID) INJECTION [Suspect]
     Dosage: 1200 MG,
     Dates: start: 20060828, end: 20060904
  5. DIFLUCAN (FLUCONAZOLE) CAPSULE [Concomitant]
  6. VFEND (VORICONAZOLE) INJECTION [Concomitant]
  7. MEROPEN (MEROPENEM) INJECTION [Concomitant]
  8. TARGOCID [Concomitant]
  9. CEFTAZIDIME [Concomitant]
  10. BAKTAR (SULFAMETHOXAZOLE, TRIMETHOPRIM) PER ORAL NOS [Concomitant]
  11. EXACIN (ISEPAMICIN SULFATE) INJECTION [Concomitant]
  12. HABEKACIN (ARBEKACIN) INJECTION [Concomitant]
  13. TIENAM (IMIPENEM, CILASTATIN SODIUM) INJECTION [Concomitant]
  14. NEUTROGIN (LENOGRASTIM) INJECTION [Concomitant]
  15. VENILON (IMMUNOGLOBULIN HUMAN NORMAL) INJECTION [Concomitant]

REACTIONS (5)
  - ALANINE AMINOTRANSFERASE INCREASED [None]
  - ASPARTATE AMINOTRANSFERASE INCREASED [None]
  - BLOOD BILIRUBIN INCREASED [None]
  - RENAL IMPAIRMENT [None]
  - SEPSIS [None]
